FAERS Safety Report 13474031 (Version 1)
Quarter: 2017Q2

REPORT INFORMATION
  Report Type: Spontaneous
  Country: US (occurrence: US)
  Receive Date: 20170424
  Receipt Date: 20170424
  Transmission Date: 20170830
  Serious: No
  Sender: FDA-Public Use
  Company Number: US-SA-2017SA014151

PATIENT
  Age: 59 Year
  Sex: Female

DRUGS (1)
  1. LOVENOX [Suspect]
     Active Substance: ENOXAPARIN SODIUM
     Indication: HERNIA REPAIR
     Route: 065
     Dates: start: 20170119

REACTIONS (2)
  - Injection site bruising [Unknown]
  - Feeling abnormal [Unknown]
